FAERS Safety Report 18058622 (Version 1)
Quarter: 2020Q3

REPORT INFORMATION
  Report Type: Spontaneous
  Country: US (occurrence: US)
  Receive Date: 20200723
  Receipt Date: 20200723
  Transmission Date: 20201103
  Serious: Yes (Other)
  Sender: FDA-Public Use
  Company Number: US-GLAXOSMITHKLINE-US2020AMR135789

PATIENT
  Age: 51 Year
  Sex: Female
  Weight: 58.97 kg

DRUGS (3)
  1. CLEOCIN [Suspect]
     Active Substance: CLINDAMYCIN PHOSPHATE
     Indication: ORAL INFECTION
     Dosage: 300 MG
     Dates: start: 201806
  2. DOXYCYCLINE HYCLATE. [Suspect]
     Active Substance: DOXYCYCLINE HYCLATE
     Indication: ORAL INFECTION
     Dosage: 100 MG
  3. IMITREX [Suspect]
     Active Substance: SUMATRIPTAN SUCCINATE
     Indication: PRODUCT USED FOR UNKNOWN INDICATION
     Dosage: UNK

REACTIONS (10)
  - Eye irritation [Unknown]
  - Throat irritation [Unknown]
  - Lacrimation increased [Unknown]
  - Dyspnoea [Recovered/Resolved]
  - Sinusitis [Unknown]
  - Anaphylactic reaction [Unknown]
  - Throat tightness [Unknown]
  - Oral infection [Unknown]
  - Induration [Unknown]
  - Condition aggravated [Unknown]

NARRATIVE: CASE EVENT DATE: 201806
